FAERS Safety Report 24144490 (Version 3)
Quarter: 2025Q3

REPORT INFORMATION
  Report Type: Report from Study
  Country: US (occurrence: US)
  Receive Date: 20240728
  Receipt Date: 20250807
  Transmission Date: 20251020
  Serious: Yes (Death)
  Sender: ABBVIE
  Company Number: US-ABBVIE-5855834

PATIENT
  Age: 89 Year
  Sex: Female

DRUGS (25)
  1. VENCLEXTA [Suspect]
     Active Substance: VENETOCLAX
     Indication: Chronic lymphocytic leukaemia
     Dosage: TAKE 4 TABLET(S) 100 MG BY MOUTH EVERY DAY
     Route: 048
     Dates: start: 20230112
  2. ALLOPURINOL [Concomitant]
     Active Substance: ALLOPURINOL
     Indication: Product used for unknown indication
     Dosage: FORM STRENGTH: 100 MG, 30 TABLETS
     Route: 048
     Dates: start: 20220916, end: 20221016
  3. ALLOPURINOL [Concomitant]
     Active Substance: ALLOPURINOL
     Indication: Product used for unknown indication
     Dosage: FORM STRENGTH: 300 MG, 30 TABLETS
     Route: 048
     Dates: start: 20221103, end: 20221203
  4. CALQUENCE [Concomitant]
     Active Substance: ACALABRUTINIB
     Indication: Product used for unknown indication
     Dosage: FORM STRENGTH: 100 MG, 60 CAPSULES
     Route: 048
     Dates: start: 20220916, end: 20221001
  5. CHLORTHALIDONE [Concomitant]
     Active Substance: CHLORTHALIDONE
     Indication: Product used for unknown indication
     Dosage: FORM STRENGTH: 25 MG
     Route: 048
     Dates: start: 20210302
  6. DILTIAZEM [Concomitant]
     Active Substance: DILTIAZEM
     Indication: Product used for unknown indication
     Dosage: FORM STRENGTH: 120 MG
     Route: 048
     Dates: start: 20210302
  7. ELIQUIS [Concomitant]
     Active Substance: APIXABAN
     Indication: Product used for unknown indication
     Route: 048
     Dates: start: 20190703, end: 20200803
  8. FOLIC ACID [Concomitant]
     Active Substance: FOLIC ACID
     Indication: Product used for unknown indication
     Dosage: FORM STRENGTH: 1 MG
     Route: 048
     Dates: start: 20171127, end: 20200803
  9. HYDRALAZINE [Concomitant]
     Active Substance: HYDRALAZINE HYDROCHLORIDE
     Indication: Product used for unknown indication
     Route: 048
     Dates: start: 20210302
  10. IMBRUVICA [Concomitant]
     Active Substance: IBRUTINIB
     Indication: Product used for unknown indication
     Dosage: FORM STRENGTH: 280 MG
     Route: 048
     Dates: end: 20221201
  11. IMBRUVICA [Concomitant]
     Active Substance: IBRUTINIB
     Indication: Product used for unknown indication
     Dosage: FORM STRENGTH: 280 MG
     Route: 048
     Dates: end: 20221109
  12. IMBRUVICA [Concomitant]
     Active Substance: IBRUTINIB
     Indication: Product used for unknown indication
     Dosage: FORM STRENGTH: 420 MG
     Route: 048
     Dates: end: 20190212
  13. IMBRUVICA [Concomitant]
     Active Substance: IBRUTINIB
     Indication: Product used for unknown indication
     Dosage: FORM STRENGTH: 420 MG
     Route: 048
     Dates: start: 20200310, end: 20200409
  14. IMBRUVICA [Concomitant]
     Active Substance: IBRUTINIB
     Indication: Product used for unknown indication
     Dosage: FORM STRENGTH: 280 MG
     Route: 048
  15. IMBRUVICA [Concomitant]
     Active Substance: IBRUTINIB
     Indication: Product used for unknown indication
     Dosage: FORM STRENGTH: 420 MG
     Route: 048
     Dates: end: 20221112
  16. IMBRUVICA [Concomitant]
     Active Substance: IBRUTINIB
     Indication: Product used for unknown indication
     Dosage: FORM STRENGTH: 420 MG
     Route: 048
     Dates: end: 20190312
  17. IMBRUVICA [Concomitant]
     Active Substance: IBRUTINIB
     Indication: Product used for unknown indication
     Dosage: FORM STRENGTH: 420 MG
     Route: 048
     Dates: start: 20200310, end: 20200624
  18. IMBRUVICA [Concomitant]
     Active Substance: IBRUTINIB
     Indication: Product used for unknown indication
     Dosage: FORM STRENGTH: 420 MG
     Route: 048
     Dates: start: 20200624, end: 20201015
  19. IMBRUVICA [Concomitant]
     Active Substance: IBRUTINIB
     Indication: Product used for unknown indication
     Dosage: FORM STRENGTH: 420 MG
     Route: 048
     Dates: start: 20201015, end: 20210121
  20. IMBRUVICA [Concomitant]
     Active Substance: IBRUTINIB
     Indication: Product used for unknown indication
     Route: 048
     Dates: end: 20210220
  21. IMBRUVICA [Concomitant]
     Active Substance: IBRUTINIB
     Indication: Product used for unknown indication
     Route: 048
     Dates: end: 20200409
  22. IMBRUVICA [Concomitant]
     Active Substance: IBRUTINIB
     Indication: Product used for unknown indication
     Dosage: FORM STRENGTH: 420 MG
     Route: 048
     Dates: end: 20190312
  23. IMBRUVICA [Concomitant]
     Active Substance: IBRUTINIB
     Indication: Product used for unknown indication
     Dosage: FORM STRENGTH: 420 MG
     Route: 048
     Dates: start: 20210121, end: 20210220
  24. LEVETIRACETAM [Concomitant]
     Active Substance: LEVETIRACETAM
     Indication: Product used for unknown indication
     Route: 048
     Dates: start: 20171127
  25. LOSARTAN [Concomitant]
     Active Substance: LOSARTAN
     Indication: Product used for unknown indication
     Dosage: FORM STRENGTH: 50 MG
     Route: 048
     Dates: start: 20190219

REACTIONS (1)
  - Death [Fatal]

NARRATIVE: CASE EVENT DATE: 20240620
